FAERS Safety Report 8474002-2 (Version None)
Quarter: 2012Q2

REPORT INFORMATION
  Report Type: 
  Country: None (occurrence: None)
  Receive Date: 20120628
  Receipt Date: 20120316
  Transmission Date: 20120825
  Serious: Yes (Other)
  Sender: FDA-Public Use
  Company Number: US-MYLANLABS-2012S1005735

PATIENT
  Age: 42 Year
  Sex: Male

DRUGS (4)
  1. AMPHETAMINE AND DEXTROAMPHETAMINE SALTS [Concomitant]
     Route: 048
  2. LANTUS [Concomitant]
  3. OXYCODONE/ACETAMINOPHEN [Concomitant]
     Dosage: 7.5/325MG
     Route: 048
  4. CLOZAPINE [Suspect]
     Indication: SCHIZOPHRENIA
     Route: 048
     Dates: start: 20120119, end: 20120229

REACTIONS (2)
  - WHITE BLOOD CELL COUNT DECREASED [None]
  - GRANULOCYTOPENIA [None]
